FAERS Safety Report 8816057 (Version 1)
Quarter: 2012Q4

REPORT INFORMATION
  Report Type: 
  Country: BR (occurrence: BR)
  Receive Date: 20120928
  Receipt Date: 20120928
  Transmission Date: 20130627
  Serious: Yes (Other)
  Sender: FDA-Public Use
  Company Number: BR-SANOFI-AVENTIS-2012SA020591

PATIENT
  Age: 37 Year
  Sex: Female
  Weight: 90 kg

DRUGS (5)
  1. CLEXANE [Suspect]
     Indication: GENE MUTATION
     Dosage: strength: 40 mg
     Route: 065
     Dates: start: 2011
  2. CLEXANE [Suspect]
     Indication: GENE MUTATION
     Dosage: strength: 60 mg
     Route: 065
  3. CLEXANE [Suspect]
     Indication: GENE MUTATION
     Dosage: strength: 80 mg
     Route: 065
     Dates: end: 201205
  4. FOLIC ACID [Concomitant]
     Indication: ANEMIA
     Dosage: unspecified dose once a day; started since pregnancy beginning
     Route: 048
     Dates: end: 20120516
  5. ISOXSUPRINE HYDROCHLORIDE [Concomitant]
     Indication: UTERINE CONTRACTIONS DURING PREGNANCY
     Dosage: unspecified dose; started 2 weeks ago
     Route: 048
     Dates: end: 2012

REACTIONS (4)
  - Abortion spontaneous complete [Unknown]
  - Exposure during pregnancy [Unknown]
  - Umbilical cord thrombosis [Recovered/Resolved]
  - Hypocoagulable state [Recovered/Resolved]
